FAERS Safety Report 4999779-X (Version None)
Quarter: 2006Q2

REPORT INFORMATION
  Report Type: 
  Country: None (occurrence: None)
  Receive Date: 20060511
  Receipt Date: 20060504
  Transmission Date: 20061013
  Serious: Yes (Life-Threatening, Hospitalization)
  Sender: FDA-Public Use
  Company Number: DE-MERCK-0605DEU00061

PATIENT
  Age: 55 Year
  Sex: Male
  Weight: 79 kg

DRUGS (2)
  1. MAXALT [Suspect]
     Indication: HEADACHE
     Route: 048
     Dates: start: 20060118, end: 20060118
  2. MAXALT [Suspect]
     Indication: DIZZINESS
     Route: 048
     Dates: start: 20060118, end: 20060118

REACTIONS (2)
  - BRAIN STEM INFARCTION [None]
  - PNEUMONIA ASPIRATION [None]
